FAERS Safety Report 7663528-7 (Version None)
Quarter: 2011Q3

REPORT INFORMATION
  Report Type: 
  Country: None (occurrence: None)
  Receive Date: 20110805
  Receipt Date: 20100817
  Transmission Date: 20111222
  Serious: No
  Sender: FDA-Public Use
  Company Number: US-ABBOTT-10P-163-0664383-00

PATIENT
  Sex: Female
  Weight: 86.26 kg

DRUGS (3)
  1. PROTONIX [Concomitant]
     Indication: PRODUCT USED FOR UNKNOWN INDICATION
  2. ASPIRIN [Concomitant]
     Indication: PRODUCT USED FOR UNKNOWN INDICATION
  3. NIASPAN [Suspect]
     Indication: HYPERLIPIDAEMIA

REACTIONS (6)
  - PAIN OF SKIN [None]
  - MALAISE [None]
  - SINUS HEADACHE [None]
  - PRURITUS [None]
  - FLUSHING [None]
  - SKIN BURNING SENSATION [None]
